FAERS Safety Report 26100770 (Version 1)
Quarter: 2025Q4

REPORT INFORMATION
  Report Type: Spontaneous
  Country: EU (occurrence: EU)
  Receive Date: 20251128
  Receipt Date: 20251128
  Transmission Date: 20260118
  Serious: Yes (Other)
  Sender: AUROBINDO
  Company Number: EU-Pharmaand-2025001098

PATIENT
  Age: 51 Year
  Sex: Female

DRUGS (2)
  1. BENDAMUSTINE [Suspect]
     Active Substance: BENDAMUSTINE
     Indication: Extranodal marginal zone B-cell lymphoma (MALT type) stage II
     Dosage: UNK (6 CYCLES)
  2. RITUXIMAB [Concomitant]
     Active Substance: RITUXIMAB
     Indication: Extranodal marginal zone B-cell lymphoma (MALT type) stage II
     Dosage: UNK (6 CYCLES)
     Route: 065

REACTIONS (6)
  - Extranodal marginal zone B-cell lymphoma (MALT type) stage II [Unknown]
  - Disease recurrence [Unknown]
  - Erythema nodosum [Unknown]
  - Cough [Unknown]
  - Palatal disorder [Unknown]
  - Off label use [Recovered/Resolved]

NARRATIVE: CASE EVENT DATE: 20220401
